FAERS Safety Report 16510392 (Version 3)
Quarter: 2020Q2

REPORT INFORMATION
  Report Type: Spontaneous
  Country: CA (occurrence: CA)
  Receive Date: 20190702
  Receipt Date: 20200429
  Transmission Date: 20200713
  Serious: Yes (Life-Threatening, Hospitalization, Disabling, Other)
  Sender: FDA-Public Use
  Company Number: CA-AUROBINDO-AUR-APL-2019-036902

PATIENT
  Age: 12 Day
  Sex: Male
  Weight: 3 kg

DRUGS (8)
  1. SERTRALINE [Suspect]
     Active Substance: SERTRALINE HYDROCHLORIDE
     Indication: PRODUCT USED FOR UNKNOWN INDICATION
     Dosage: 100 MILLIGRAM, ONCE A DAY
     Route: 064
  2. LAMOTRIGINE TABLET [Suspect]
     Active Substance: LAMOTRIGINE
     Indication: PRODUCT USED FOR UNKNOWN INDICATION
     Dosage: 250 MILLIGRAM, ONCE A DAY
     Route: 064
  3. ABILIFY [Suspect]
     Active Substance: ARIPIPRAZOLE
     Indication: PRODUCT USED FOR UNKNOWN INDICATION
     Dosage: 15 MILLIGRAM, ONCE A DAY
     Route: 064
  4. SYNTHROID [Concomitant]
     Active Substance: LEVOTHYROXINE SODIUM
     Indication: PRODUCT USED FOR UNKNOWN INDICATION
     Dosage: UNK
     Route: 065
  5. ABILIFY [Suspect]
     Active Substance: ARIPIPRAZOLE
     Dosage: 15 MILLIGRAM, ONCE A DAY
     Route: 063
  6. SERTRALINE [Suspect]
     Active Substance: SERTRALINE HYDROCHLORIDE
     Dosage: 100 MILLIGRAM, ONCE A DAY
     Route: 063
  7. LAMICTAL [Suspect]
     Active Substance: LAMOTRIGINE
     Dosage: 250 MILLIGRAM, ONCE A DAY
     Route: 063
  8. LAMICTAL [Suspect]
     Active Substance: LAMOTRIGINE
     Indication: PRODUCT USED FOR UNKNOWN INDICATION
     Dosage: 250 MILLIGRAM, ONCE A DAY
     Route: 064

REACTIONS (27)
  - Foot amputation [Recovering/Resolving]
  - Extremity necrosis [Recovering/Resolving]
  - Somnolence [Recovering/Resolving]
  - Anaemia neonatal [Recovered/Resolved with Sequelae]
  - Glycosuria [Recovered/Resolved with Sequelae]
  - Toe amputation [Recovered/Resolved with Sequelae]
  - Weight decrease neonatal [Recovered/Resolved with Sequelae]
  - Crystal urine present [Recovering/Resolving]
  - Rhabdomyolysis [Recovered/Resolved with Sequelae]
  - Hypophagia [Recovered/Resolved with Sequelae]
  - Exposure via breast milk [Recovered/Resolved with Sequelae]
  - Heart rate increased [Recovering/Resolving]
  - Hypernatraemia [Recovered/Resolved with Sequelae]
  - Hypokalaemia [Recovered/Resolved with Sequelae]
  - Hypovolaemic shock [Recovered/Resolved with Sequelae]
  - Euthyroid sick syndrome [Recovered/Resolved with Sequelae]
  - Weight decreased [Recovering/Resolving]
  - Disseminated intravascular coagulation [Recovered/Resolved with Sequelae]
  - Metabolic acidosis [Recovered/Resolved with Sequelae]
  - Foetal exposure during pregnancy [Recovered/Resolved with Sequelae]
  - Thrombosis [Recovered/Resolved with Sequelae]
  - Dehydration [Recovered/Resolved with Sequelae]
  - Hypouricaemia [Recovered/Resolved with Sequelae]
  - Acute kidney injury [Recovered/Resolved with Sequelae]
  - Hypoalbuminaemia [Recovered/Resolved with Sequelae]
  - Skin graft [Recovering/Resolving]
  - Necrosis [Recovered/Resolved with Sequelae]
